FAERS Safety Report 5819885-7 (Version None)
Quarter: 2008Q3

REPORT INFORMATION
  Report Type: 
  Country: None (occurrence: None)
  Receive Date: 20080723
  Receipt Date: 20080711
  Transmission Date: 20090109
  Serious: No
  Sender: FDA-Public Use
  Company Number: US-MERCK-0807USA02958B1

PATIENT

DRUGS (3)
  1. SINGULAIR [Suspect]
     Route: 064
  2. SINGULAIR [Suspect]
     Route: 064
     Dates: start: 20010101
  3. SEREVENT [Concomitant]
     Route: 064

REACTIONS (1)
  - MATERNAL DRUGS AFFECTING FOETUS [None]
